FAERS Safety Report 6464608-4 (Version None)
Quarter: 2009Q4

REPORT INFORMATION
  Report Type: 
  Country: None (occurrence: None)
  Receive Date: 20091201
  Receipt Date: 20091123
  Transmission Date: 20100525
  Serious: Yes (Hospitalization, Disabling)
  Sender: FDA-Public Use
  Company Number: US-MERCK-0811USA02809

PATIENT
  Age: 71 Year
  Sex: Female
  Weight: 113 kg

DRUGS (4)
  1. FOSAMAX [Suspect]
     Indication: OSTEOPOROSIS
     Route: 048
     Dates: start: 20031217, end: 20070108
  2. SYNTHROID [Concomitant]
     Indication: THYROID DISORDER
     Route: 065
     Dates: start: 19980101
  3. ZOCOR [Concomitant]
     Route: 065
     Dates: start: 20030101
  4. CORTICOSTEROIDS (UNSPECIFIED) [Concomitant]
     Route: 065
     Dates: start: 19950101, end: 20050101

REACTIONS (24)
  - ANAEMIA [None]
  - ARTHROPATHY [None]
  - ATELECTASIS [None]
  - BACK PAIN [None]
  - BENIGN NEOPLASM [None]
  - CONSTIPATION [None]
  - DERMATITIS CONTACT [None]
  - DIARRHOEA [None]
  - DIVERTICULUM [None]
  - EAR DISCOMFORT [None]
  - FISTULA [None]
  - GASTROOESOPHAGEAL REFLUX DISEASE [None]
  - HAEMORRHOIDS [None]
  - HYPOAESTHESIA [None]
  - INFECTION [None]
  - JAW DISORDER [None]
  - MASTICATION DISORDER [None]
  - OBESITY [None]
  - OSTEONECROSIS [None]
  - PARAESTHESIA [None]
  - POLYNEUROPATHY IDIOPATHIC PROGRESSIVE [None]
  - SINUS DISORDER [None]
  - TEMPOROMANDIBULAR JOINT SYNDROME [None]
  - VARICOSE VEIN [None]
